FAERS Safety Report 6784571-6 (Version None)
Quarter: 2010Q2

REPORT INFORMATION
  Report Type: 
  Country: None (occurrence: None)
  Receive Date: 20100622
  Receipt Date: 20100616
  Transmission Date: 20101027
  Serious: Yes (Hospitalization)
  Sender: FDA-Public Use
  Company Number: A0790719A

PATIENT
  Age: 53 Year
  Sex: Female

DRUGS (11)
  1. AVANDIA [Suspect]
     Indication: DIABETES MELLITUS
     Dosage: 8MG PER DAY
     Route: 048
     Dates: start: 19990101, end: 20050125
  2. SYNTHROID [Concomitant]
  3. ACCUPRIL [Concomitant]
  4. METOPROLOL TARTRATE [Concomitant]
  5. GABAPENTIN [Concomitant]
  6. GLIPIZIDE [Concomitant]
  7. CITALOPRAM HYDROBROMIDE [Concomitant]
  8. OMEPRAZOLE [Concomitant]
  9. INSULIN [Concomitant]
  10. PREMPRO [Concomitant]
  11. VIOXX [Concomitant]

REACTIONS (2)
  - CARDIAC FAILURE CONGESTIVE [None]
  - MYOCARDIAL INFARCTION [None]
